FAERS Safety Report 6894996-6 (Version None)
Quarter: 2010Q3

REPORT INFORMATION
  Report Type: 
  Country: None (occurrence: None)
  Receive Date: 20100802
  Receipt Date: 20100729
  Transmission Date: 20110219
  Serious: Yes (Death)
  Sender: FDA-Public Use
  Company Number: CH-ROCHE-717987

PATIENT
  Sex: Male
  Weight: 91 kg

DRUGS (2)
  1. METHOXY POLYETHYLENE GLYCOL-EPOETIN BETA [Suspect]
     Dosage: DOSE: 100 IE
     Route: 065
     Dates: start: 20090901, end: 20091014
  2. IRON [Concomitant]
     Indication: ANAEMIA

REACTIONS (1)
  - LEFT VENTRICULAR FAILURE [None]
